FAERS Safety Report 4724510-2 (Version None)
Quarter: 2005Q3

REPORT INFORMATION
  Report Type: 
  Country: None (occurrence: None)
  Receive Date: 20050726
  Receipt Date: 20040402
  Transmission Date: 20060218
  Serious: Yes (Hospitalization)
  Sender: FDA-Public Use
  Company Number: US-BOEHRINGER INGELHEIM PHARMACEUTICALS, INC.-2004-BP-02599BP

PATIENT
  Sex: Male

DRUGS (1)
  1. TIPRANAVIR / RITONAVIR CAPSULES [Suspect]
     Indication: HIV INFECTION
     Dates: start: 20030909

REACTIONS (4)
  - ABSCESS JAW [None]
  - CELLULITIS [None]
  - CHOLELITHIASIS [None]
  - SPLENOMEGALY [None]
